FAERS Safety Report 7015950-X (Version None)
Quarter: 2010Q3

REPORT INFORMATION
  Report Type: 
  Country: None (occurrence: None)
  Receive Date: 20100927
  Receipt Date: 20090929
  Transmission Date: 20110219
  Serious: No
  Sender: FDA-Public Use
  Company Number: US-ASTRAZENECA-2009SE16707

PATIENT
  Age: 70 Year
  Sex: Female

DRUGS (3)
  1. ARIMIDEX [Suspect]
     Indication: BREAST CANCER
     Route: 048
     Dates: start: 20040101, end: 20090901
  2. ATENOLOL [Concomitant]
     Indication: HYPERTENSION
  3. TRAZODONE HCL [Concomitant]
     Indication: ANXIETY

REACTIONS (3)
  - AGITATION [None]
  - HOT FLUSH [None]
  - INSOMNIA [None]
